FAERS Safety Report 14762218 (Version 1)
Quarter: 2018Q2

REPORT INFORMATION
  Report Type: Spontaneous
  Country: US (occurrence: US)
  Receive Date: 20180416
  Receipt Date: 20180416
  Transmission Date: 20180711
  Serious: Yes (Other)
  Sender: FDA-Public Use
  Company Number: US-009507513-1804USA005829

PATIENT
  Age: 63 Year
  Sex: Female

DRUGS (13)
  1. NYSTATIN. [Concomitant]
     Active Substance: NYSTATIN
     Dosage: 100000/ML SUSPENSION, ORAL (FINAL DOSE FORM) TAKE 5 ML SWISH AND SWALLOW TID.
     Route: 048
  2. KEYTRUDA [Suspect]
     Active Substance: PEMBROLIZUMAB
     Indication: NON-SMALL CELL LUNG CANCER
     Dosage: 200 MG, EVERY 3 WEEKS
     Route: 042
     Dates: start: 20170420, end: 20170921
  3. CLONIDINE HYDROCHLORIDE. [Concomitant]
     Active Substance: CLONIDINE HYDROCHLORIDE
     Dosage: TAKE 1 PO BID
     Route: 048
  4. PENICILLIN VK [Concomitant]
     Active Substance: PENICILLIN V POTASSIUM
     Dosage: TAKE 1 PO TIO.
     Route: 048
  5. DEXAMETHASONE. [Concomitant]
     Active Substance: DEXAMETHASONE
     Dosage: 1 PO AS DIRECTED, INSTRUCTIONS: START DAY BEFORE CHEMO AND TAKE
     Route: 048
  6. METOPROLOL TARTRATE. [Concomitant]
     Active Substance: METOPROLOL TARTRATE
     Dosage: TAKE 1 PO BID
     Route: 048
  7. ZOFRAN [Concomitant]
     Active Substance: ONDANSETRON HYDROCHLORIDE
     Dosage: DISINTEGRATING TAKE 1 TABLET(S) PO Q8H PRN.
     Route: 048
  8. ATIVAN [Concomitant]
     Active Substance: LORAZEPAM
     Indication: ANXIETY
     Dosage: TAKE 1 PO Q4H PRN
  9. MARINOL [Concomitant]
     Active Substance: DRONABINOL
     Dosage: TAKE 1 PO QDAY
     Route: 048
  10. BETAMETHASONE DIPROPIONATE (+) CLOTRIMAZOLE [Concomitant]
     Dosage: TAKE 1 APPLICATION TOPICAL DAILY.
     Route: 061
  11. MUPIROCIN. [Concomitant]
     Active Substance: MUPIROCIN
     Dosage: TAKE 1 UNITS TOPICAL BID.
     Route: 061
  12. COMPAZINE (PROCHLORPERAZINE MALEATE) [Concomitant]
     Indication: NAUSEA
     Dosage: TAKE 1 PO Q6H PRN
     Route: 048
  13. OXYCODONE HYDROCHLORIDE. [Concomitant]
     Active Substance: OXYCODONE HYDROCHLORIDE
     Dosage: TAKE 1 PO Q4H PRN

REACTIONS (2)
  - White blood cell count increased [Unknown]
  - Malignant neoplasm progression [Unknown]

NARRATIVE: CASE EVENT DATE: 20170921
